FAERS Safety Report 8387766-3 (Version None)
Quarter: 2012Q2

REPORT INFORMATION
  Report Type: 
  Country: None (occurrence: None)
  Receive Date: 20120525
  Receipt Date: 20120517
  Transmission Date: 20120825
  Serious: Yes (Hospitalization)
  Sender: FDA-Public Use
  Company Number: US-GLAXOSMITHKLINE-A0978641A

PATIENT
  Age: 71 Year
  Sex: Female
  Weight: 74.4 kg

DRUGS (5)
  1. GLUCOVANCE [Suspect]
  2. IMODIUM [Concomitant]
  3. AMBIEN [Concomitant]
  4. PAZOPANIB [Suspect]
     Indication: UTERINE CANCER
     Dosage: 800MG PER DAY
     Route: 048
     Dates: start: 20111216
  5. DIOVAN HCT [Concomitant]

REACTIONS (3)
  - MENTAL STATUS CHANGES [None]
  - HYPERTENSION [None]
  - HYPOGLYCAEMIA [None]
